FAERS Safety Report 6250683-9 (Version None)
Quarter: 2009Q2

REPORT INFORMATION
  Report Type: 
  Country: None (occurrence: None)
  Receive Date: 20090630
  Receipt Date: 20090622
  Transmission Date: 20091009
  Serious: Yes (Hospitalization)
  Sender: FDA-Public Use
  Company Number: SE-WYE-H09823709

PATIENT
  Sex: Female

DRUGS (17)
  1. RAPAMUNE [Suspect]
     Indication: PROPHYLAXIS AGAINST TRANSPLANT REJECTION
     Dosage: 1 MG-9 MG DAILY
     Route: 048
     Dates: start: 20031226, end: 20040315
  2. MYCOPHENOLATE MOFETIL [Suspect]
     Indication: PROPHYLAXIS AGAINST TRANSPLANT REJECTION
     Dosage: VARIABLE DOSE
     Route: 048
     Dates: start: 20031225, end: 20061016
  3. METHYLPREDNISOLONE [Suspect]
     Indication: PROPHYLAXIS AGAINST TRANSPLANT REJECTION
     Dosage: 500 MG
     Route: 042
     Dates: start: 20031225, end: 20040323
  4. PREDNISOLONE [Suspect]
     Indication: PROPHYLAXIS AGAINST TRANSPLANT REJECTION
     Dosage: 5-100 MG ONCE OR TWICE A DAY
     Route: 048
     Dates: start: 20031226, end: 20050111
  5. TRIMETHOPRIM [Concomitant]
     Dosage: NOT PROVIDED
     Dates: start: 20040309
  6. PENTAMIDINE ISETHIONATE [Concomitant]
     Dosage: NOT PROVIDED
     Dates: start: 20040101
  7. REGULAR INSULIN [Concomitant]
     Dosage: NOT PROVIDED
     Dates: start: 20031227, end: 20040104
  8. FLUCONAZOLE [Concomitant]
     Dosage: NOT PROVIDED
     Dates: start: 20040224
  9. CEFOTAXIME [Concomitant]
     Dosage: NOT PROVIDED
     Dates: start: 20031223
  10. ACETYLSALICYLSYRA [Concomitant]
     Dosage: NOT PROVIDED
     Dates: start: 20040107
  11. PANTOPRAZOLE SODIUM [Concomitant]
     Dosage: NOT PROVIDED
     Dates: start: 20031227
  12. GLIBENCLAMIDE [Concomitant]
     Dosage: NOT PROVIDED
     Dates: start: 20040105, end: 20040707
  13. VALGANCICLOVIR HCL [Concomitant]
  14. HYDROCORTISONE [Concomitant]
     Indication: PROPHYLAXIS AGAINST TRANSPLANT REJECTION
     Dosage: 50 MG
     Route: 042
     Dates: start: 20040220
  15. TACROLIMUS [Concomitant]
     Indication: PROPHYLAXIS AGAINST TRANSPLANT REJECTION
     Route: 048
     Dates: start: 20040315
  16. FUROSEMIDE INTENSOL [Concomitant]
     Dosage: NOT PROVIDED
     Dates: start: 20031226
  17. DACLIZUMAB [Suspect]
     Indication: PROPHYLAXIS AGAINST TRANSPLANT REJECTION
     Dosage: 100-50 MG EVERY OTHER WEEK
     Route: 042
     Dates: start: 20031225, end: 20040217

REACTIONS (2)
  - GASTROENTERITIS [None]
  - RENAL IMPAIRMENT [None]
